FAERS Safety Report 10530983 (Version 8)
Quarter: 2015Q2

REPORT INFORMATION
  Report Type: Spontaneous
  Country: GB (occurrence: GB)
  Receive Date: 20141021
  Receipt Date: 20150527
  Transmission Date: 20150821
  Serious: Yes (Disabling)
  Sender: FDA-Public Use
  Company Number: GB-ABBVIE-14P-167-1297015-00

PATIENT
  Sex: Male

DRUGS (1)
  1. PROSTAP 3 DCS 11.25 MG (LEUPRORELIN ACETATE) [Suspect]
     Active Substance: LEUPROLIDE ACETATE
     Indication: PROSTATE CANCER METASTATIC
     Route: 050
     Dates: start: 201211

REACTIONS (9)
  - Muscular weakness [Unknown]
  - Arthralgia [Unknown]
  - Mobility decreased [Unknown]
  - Spinal cord disorder [Unknown]
  - Myalgia [Unknown]
  - Sensory loss [Unknown]
  - Gait disturbance [Unknown]
  - Spinal cord injury [Unknown]
  - Balance disorder [Unknown]
